FAERS Safety Report 17717752 (Version 1)
Quarter: 2020Q2

REPORT INFORMATION
  Report Type: Spontaneous
  Country: FR (occurrence: FR)
  Receive Date: 20200428
  Receipt Date: 20200428
  Transmission Date: 20200714
  Serious: Yes (Hospitalization)
  Sender: FDA-Public Use
  Company Number: FR-MYLANLABS-2020M1041775

PATIENT
  Age: 49 Year
  Sex: Female
  Weight: 57 kg

DRUGS (2)
  1. KETOPROFEN. [Suspect]
     Active Substance: KETOPROFEN
     Indication: PRODUCT USED FOR UNKNOWN INDICATION
     Dosage: NON PRECISE
     Route: 048
     Dates: start: 201912
  2. ANGI-SPRAY /02860501/ [Suspect]
     Active Substance: CHLOROBUTANOL\HEXETIDINE\PROPIONIC ACID
     Indication: OROPHARYNGEAL PAIN
     Dosage: NON PR?CIS?
     Route: 048
     Dates: start: 201912, end: 201912

REACTIONS (3)
  - Reversible cerebral vasoconstriction syndrome [Recovered/Resolved]
  - Vertigo [Recovered/Resolved]
  - Headache [Recovered/Resolved]

NARRATIVE: CASE EVENT DATE: 20191213
